FAERS Safety Report 8439533-X (Version None)
Quarter: 2012Q2

REPORT INFORMATION
  Report Type: 
  Country: None (occurrence: None)
  Receive Date: 20120611
  Receipt Date: 20120611
  Transmission Date: 20120825
  Serious: Yes (Other)
  Sender: FDA-Public Use
  Company Number: None

PATIENT
  Sex: Female

DRUGS (2)
  1. PROLIXIN [Suspect]
     Indication: DELUSION
     Dosage: 50MG
  2. SEROQUEL [Suspect]
     Dosage: 300MG

REACTIONS (4)
  - DELUSION [None]
  - CONDITION AGGRAVATED [None]
  - HOMICIDAL IDEATION [None]
  - VIOLENCE-RELATED SYMPTOM [None]
